FAERS Safety Report 8311573-0 (Version None)
Quarter: 2012Q1

REPORT INFORMATION
  Report Type: 
  Country: None (occurrence: None)
  Receive Date: 20120315
  Receipt Date: 20101209
  Transmission Date: 20120608
  Serious: No
  Sender: FDA-Public Use
  Company Number: PHHY2010US84234

PATIENT
  Sex: Female

DRUGS (1)
  1. GILENYA [Suspect]
     Dosage: 0.5 MG DAILY, ORAL
     Route: 048

REACTIONS (4)
  - DIZZINESS [None]
  - RHINORRHOEA [None]
  - VISUAL IMPAIRMENT [None]
  - VISION BLURRED [None]
